FAERS Safety Report 5119580-6 (Version None)
Quarter: 2006Q3

REPORT INFORMATION
  Report Type: 
  Country: None (occurrence: None)
  Receive Date: 20060928
  Receipt Date: 20060921
  Transmission Date: 20061208
  Serious: Yes (Other)
  Sender: FDA-Public Use
  Company Number: 2006082226

PATIENT
  Age: 66 Year
  Sex: Female
  Weight: 73.4827 kg

DRUGS (19)
  1. CELEBREX [Suspect]
     Indication: ARTHROPATHY
     Dosage: 100 MG (100 MG, 1 IN 1 D)
     Dates: start: 20000101
  2. CELEBREX [Suspect]
     Indication: EXOSTOSIS
     Dosage: 100 MG (100 MG, 1 IN 1 D)
     Dates: start: 20000101
  3. CELEBREX [Suspect]
     Indication: PAIN
     Dosage: 100 MG (100 MG, 1 IN 1 D)
     Dates: start: 20000101
  4. NEURONTIN [Suspect]
     Indication: ASTHENIA
     Dates: start: 20040101
  5. NEURONTIN [Suspect]
     Indication: NERVE INJURY
     Dates: start: 20040101
  6. NEURONTIN [Suspect]
     Indication: PAIN
     Dates: start: 20040101
  7. GABAPENTIN [Suspect]
     Indication: ASTHENIA
  8. GABAPENTIN [Suspect]
     Indication: NERVE INJURY
  9. GABAPENTIN [Suspect]
     Indication: PAIN
  10. CORTISONE ACETATE [Suspect]
     Indication: BURSITIS
  11. CORTISONE ACETATE [Suspect]
     Indication: PAIN
  12. SOMA [Suspect]
     Indication: MUSCLE SPASMS
     Dosage: 4 IN 1 D
     Dates: start: 20060101
  13. SOMA [Suspect]
     Indication: NERVE INJURY
     Dosage: 4 IN 1 D
     Dates: start: 20060101
  14. TOPROL-XL [Concomitant]
  15. BENAZEPRIL (BENAZEPRIL) [Concomitant]
  16. METFORMIN HCL [Concomitant]
  17. LEVOTHYROXINE SODIUM [Concomitant]
  18. AMITRIPTYLINE HCL [Concomitant]
  19. HYDROCHLOROTHIAZIDE [Concomitant]

REACTIONS (22)
  - ARTHRALGIA [None]
  - ARTHROPATHY [None]
  - ASTHENIA [None]
  - BACK PAIN [None]
  - BEDRIDDEN [None]
  - BODY HEIGHT DECREASED [None]
  - BURSITIS [None]
  - CONDITION AGGRAVATED [None]
  - DISEASE PROGRESSION [None]
  - ECONOMIC PROBLEM [None]
  - EXOSTOSIS [None]
  - IMPAIRED WORK ABILITY [None]
  - INTERVERTEBRAL DISC PROTRUSION [None]
  - JOINT SWELLING [None]
  - MUSCLE SPASMS [None]
  - NERVE COMPRESSION [None]
  - OEDEMA PERIPHERAL [None]
  - OSTEOARTHRITIS [None]
  - PAIN [None]
  - PAIN IN EXTREMITY [None]
  - SCOLIOSIS [None]
  - SOMNOLENCE [None]
